FAERS Safety Report 8525192 (Version 46)
Quarter: 2016Q4

REPORT INFORMATION
  Report Type: Report from Study
  Country: CA (occurrence: CA)
  Receive Date: 20120423
  Receipt Date: 20161103
  Transmission Date: 20170207
  Serious: Yes (Other)
  Sender: FDA-Public Use
  Company Number: PHHY2012CA033489

PATIENT
  Age: 60 Year
  Sex: Male

DRUGS (8)
  1. SANDOSTATIN LAR DEPOT [Suspect]
     Active Substance: OCTREOTIDE ACETATE
     Indication: NEUROENDOCRINE TUMOUR
     Dosage: 30 MG, QMO
     Route: 030
     Dates: start: 20110708
  2. APO-PERPHENAZINE [Concomitant]
     Indication: PRODUCT USED FOR UNKNOWN INDICATION
     Route: 065
  3. SANDOSTATIN LAR DEPOT [Suspect]
     Active Substance: OCTREOTIDE ACETATE
     Dosage: 30 MG,  (EVERY 2 WEEKS)
     Route: 030
     Dates: start: 20111015
  4. SANDOSTATIN LAR DEPOT [Suspect]
     Active Substance: OCTREOTIDE ACETATE
     Dosage: 60 MG, QMO (EVERY 4 WEEKS)
     Route: 030
     Dates: start: 20130205
  5. CELEXA [Concomitant]
     Active Substance: CITALOPRAM HYDROBROMIDE
     Indication: PRODUCT USED FOR UNKNOWN INDICATION
     Route: 065
  6. MINT-CITALOPRAM [Concomitant]
     Indication: PRODUCT USED FOR UNKNOWN INDICATION
     Route: 065
  7. SANDOSTATIN LAR DEPOT [Suspect]
     Active Substance: OCTREOTIDE ACETATE
     Dosage: 60 MG, EVERY 3 WEEKS
     Route: 030
     Dates: start: 20140718
  8. SANDOSTATIN [Suspect]
     Active Substance: OCTREOTIDE ACETATE
     Indication: NEUROENDOCRINE TUMOUR
     Route: 058
     Dates: start: 20110706

REACTIONS (35)
  - Blood pressure systolic increased [Unknown]
  - Flank pain [Unknown]
  - Nasal congestion [Unknown]
  - Injection site pain [Not Recovered/Not Resolved]
  - Decreased appetite [Unknown]
  - Product quality issue [Unknown]
  - Dizziness [Unknown]
  - Anal incontinence [Unknown]
  - Ascites [Unknown]
  - Hormone level abnormal [Unknown]
  - Discomfort [Unknown]
  - Injection site erythema [Unknown]
  - Drug ineffective [Unknown]
  - Inappropriate schedule of drug administration [Unknown]
  - Diarrhoea [Not Recovered/Not Resolved]
  - Fatigue [Unknown]
  - Injection site haemorrhage [Unknown]
  - Weight decreased [Unknown]
  - Confusional state [Unknown]
  - Personality change [Unknown]
  - Flushing [Unknown]
  - Heart rate increased [Unknown]
  - Injection site swelling [Recovering/Resolving]
  - Diabetes mellitus [Unknown]
  - Malignant neoplasm progression [Unknown]
  - Flatulence [Recovering/Resolving]
  - Dyspnoea [Unknown]
  - Fungal infection [Unknown]
  - Groin infection [Unknown]
  - Gastrointestinal sounds abnormal [Unknown]
  - Facial paralysis [Unknown]
  - Urinary tract infection [Recovering/Resolving]
  - Defaecation urgency [Unknown]
  - Depression [Unknown]
  - Abdominal distension [Not Recovered/Not Resolved]

NARRATIVE: CASE EVENT DATE: 20110708
